FAERS Safety Report 14533473 (Version 15)
Quarter: 2019Q1

REPORT INFORMATION
  Report Type: Report from Study
  Country: MX (occurrence: MX)
  Receive Date: 20180215
  Receipt Date: 20190129
  Transmission Date: 20190417
  Serious: Yes (Disabling)
  Sender: FDA-Public Use
  Company Number: MX-ROCHE-2065123

PATIENT
  Age: 58 Year
  Sex: Male
  Weight: 62.7 kg

DRUGS (70)
  1. LEUCOVORIN. [Suspect]
     Active Substance: LEUCOVORIN
     Indication: COLORECTAL CANCER METASTATIC
     Dosage: MOST RECENT DOSE PRIOR TO EVENT: 24/JAN/2018?1600-2400 MG/M^2 5-FU VIA 46-HOUR IV INFUSION IN COMBIN
     Route: 042
     Dates: start: 20171129
  2. CLOROTRIMETON [Concomitant]
     Active Substance: CHLORPHENIRAMINE MALEATE
     Route: 065
     Dates: start: 20180124, end: 20180124
  3. CLOROTRIMETON [Concomitant]
     Active Substance: CHLORPHENIRAMINE MALEATE
     Route: 065
     Dates: start: 20180530, end: 20180530
  4. RANITIDINE. [Concomitant]
     Active Substance: RANITIDINE
     Indication: PREMEDICATION
     Dosage: PREMEDICATION
     Route: 065
     Dates: start: 20171011, end: 20171011
  5. RANITIDINE. [Concomitant]
     Active Substance: RANITIDINE
     Dosage: PREMEDICATION
     Route: 065
     Dates: start: 20171227, end: 20171227
  6. COZAAR [Concomitant]
     Active Substance: LOSARTAN POTASSIUM
     Route: 065
     Dates: start: 20170610
  7. CLOROTRIMETON [Concomitant]
     Active Substance: CHLORPHENIRAMINE MALEATE
     Route: 065
     Dates: start: 20170816, end: 20170816
  8. DEXAMETHASONE. [Concomitant]
     Active Substance: DEXAMETHASONE
     Route: 065
     Dates: start: 20171213, end: 20171213
  9. DEXAMETHASONE. [Concomitant]
     Active Substance: DEXAMETHASONE
     Route: 065
     Dates: start: 20180124, end: 20180124
  10. DEXAMETHASONE. [Concomitant]
     Active Substance: DEXAMETHASONE
     Route: 065
     Dates: start: 20180530, end: 20180530
  11. RANITIDINE. [Concomitant]
     Active Substance: RANITIDINE
     Dosage: PREMEDICATION
     Route: 065
     Dates: start: 20171129, end: 20171129
  12. RANITIDINE. [Concomitant]
     Active Substance: RANITIDINE
     Dosage: PREMEDICATION
     Route: 065
     Dates: start: 20180124, end: 20180124
  13. CETUXIMAB. [Suspect]
     Active Substance: CETUXIMAB
     Indication: COLORECTAL CANCER METASTATIC
     Dosage: MOST RECENT DOSE ADMINISTERED ON 24/JAN/2018 (905 MG) AT 13:54.?500 MG/M^2 VIA IV INFUSION ON DAY 1
     Route: 042
     Dates: start: 20171129
  14. CLOROTRIMETON [Concomitant]
     Active Substance: CHLORPHENIRAMINE MALEATE
     Indication: PREMEDICATION
     Dosage: PREMEDICATION
     Route: 065
     Dates: start: 20171011, end: 20171011
  15. CLOROTRIMETON [Concomitant]
     Active Substance: CHLORPHENIRAMINE MALEATE
     Route: 065
     Dates: start: 20171129, end: 20171129
  16. CLOROTRIMETON [Concomitant]
     Active Substance: CHLORPHENIRAMINE MALEATE
     Route: 065
     Dates: start: 20180321, end: 20180321
  17. RANITIDINE. [Concomitant]
     Active Substance: RANITIDINE
     Route: 065
     Dates: start: 20180221, end: 20180221
  18. 5-FLUOROURACIL [Suspect]
     Active Substance: FLUOROURACIL
     Indication: COLORECTAL CANCER METASTATIC
     Dosage: MOST RECENT DOSE PRIOR TO EVENT: 24/JAN/2018 AT 15 17?1600-2400 MG/M^2 5-FU VIA 46-HOUR IV INFUSION
     Route: 042
     Dates: start: 20171129
  19. CLOROTRIMETON [Concomitant]
     Active Substance: CHLORPHENIRAMINE MALEATE
     Route: 065
     Dates: start: 20171025, end: 20171025
  20. DEXAMETHASONE. [Concomitant]
     Active Substance: DEXAMETHASONE
     Route: 065
     Dates: start: 20180221, end: 20180221
  21. RANITIDINE. [Concomitant]
     Active Substance: RANITIDINE
     Dosage: PREMEDICATION
     Route: 065
     Dates: start: 20171113, end: 20171113
  22. RANITIDINE. [Concomitant]
     Active Substance: RANITIDINE
     Dosage: PREMEDICATION
     Route: 065
     Dates: start: 20170913, end: 20170913
  23. RANITIDINE. [Concomitant]
     Active Substance: RANITIDINE
     Dosage: PREMEDICATION
     Route: 065
     Dates: start: 20171109, end: 20171109
  24. CIPROFLOX [Concomitant]
     Active Substance: CIPROFLOXACIN HYDROCHLORIDE
     Indication: BACTERAEMIA
     Route: 065
     Dates: start: 20171103, end: 20171109
  25. VEMURAFENIB. [Suspect]
     Active Substance: VEMURAFENIB
     Indication: COLORECTAL CANCER METASTATIC
     Route: 048
  26. CLOROTRIMETON [Concomitant]
     Active Substance: CHLORPHENIRAMINE MALEATE
     Route: 065
     Dates: start: 20171213, end: 20171213
  27. CLOROTRIMETON [Concomitant]
     Active Substance: CHLORPHENIRAMINE MALEATE
     Route: 065
     Dates: start: 20170927, end: 20170927
  28. CLOROTRIMETON [Concomitant]
     Active Substance: CHLORPHENIRAMINE MALEATE
     Route: 065
     Dates: start: 20171109, end: 20171109
  29. CLOROTRIMETON [Concomitant]
     Active Substance: CHLORPHENIRAMINE MALEATE
     Route: 065
     Dates: start: 20180207, end: 20180207
  30. CLOROTRIMETON [Concomitant]
     Active Substance: CHLORPHENIRAMINE MALEATE
     Route: 065
     Dates: start: 20180321, end: 20180321
  31. DEXAMETHASONE. [Concomitant]
     Active Substance: DEXAMETHASONE
     Route: 065
     Dates: start: 20171129, end: 20171129
  32. DEXAMETHASONE. [Concomitant]
     Active Substance: DEXAMETHASONE
     Route: 065
     Dates: start: 20170802, end: 20170802
  33. DEXAMETHASONE. [Concomitant]
     Active Substance: DEXAMETHASONE
     Route: 065
     Dates: start: 20170830, end: 20170830
  34. DEXAMETHASONE. [Concomitant]
     Active Substance: DEXAMETHASONE
     Route: 065
     Dates: start: 20180207, end: 20180207
  35. DEXAMETHASONE. [Concomitant]
     Active Substance: DEXAMETHASONE
     Route: 065
     Dates: start: 20180307, end: 20180307
  36. DEXAMETHASONE. [Concomitant]
     Active Substance: DEXAMETHASONE
     Route: 065
     Dates: start: 20180502, end: 20180502
  37. RANITIDINE. [Concomitant]
     Active Substance: RANITIDINE
     Dosage: PREMEDICATION
     Route: 065
     Dates: start: 20170927, end: 20170927
  38. RANITIDINE. [Concomitant]
     Active Substance: RANITIDINE
     Route: 065
     Dates: start: 20180404, end: 20180404
  39. RANITIDINE. [Concomitant]
     Active Substance: RANITIDINE
     Route: 065
     Dates: start: 20180502, end: 20180502
  40. CIPROFLOX [Concomitant]
     Active Substance: CIPROFLOXACIN HYDROCHLORIDE
     Indication: URINARY TRACT INFECTION
     Route: 065
     Dates: start: 20170816, end: 20170923
  41. BENZOYL PEROXIDE. [Concomitant]
     Active Substance: BENZOYL PEROXIDE
     Indication: ECZEMA
     Route: 065
     Dates: start: 20180803, end: 20180803
  42. CLOROTRIMETON [Concomitant]
     Active Substance: CHLORPHENIRAMINE MALEATE
     Route: 065
     Dates: start: 20171227, end: 20171227
  43. CLOROTRIMETON [Concomitant]
     Active Substance: CHLORPHENIRAMINE MALEATE
     Route: 065
     Dates: start: 20170802, end: 20170802
  44. DEXAMETHASONE. [Concomitant]
     Active Substance: DEXAMETHASONE
     Route: 065
     Dates: start: 20170913, end: 20170913
  45. DEXAMETHASONE. [Concomitant]
     Active Substance: DEXAMETHASONE
     Route: 065
     Dates: start: 20171025, end: 20171025
  46. RANITIDINE. [Concomitant]
     Active Substance: RANITIDINE
     Dosage: PREMEDICATION
     Route: 065
     Dates: start: 20171025, end: 20171025
  47. RANITIDINE. [Concomitant]
     Active Substance: RANITIDINE
     Route: 065
     Dates: start: 20180530, end: 20180530
  48. BETAMETHASONE. [Concomitant]
     Active Substance: BETAMETHASONE
     Indication: ECZEMA
     Route: 065
     Dates: start: 20180803, end: 20180810
  49. VEMURAFENIB. [Suspect]
     Active Substance: VEMURAFENIB
     Indication: COLORECTAL CANCER METASTATIC
     Dosage: MOST RECENT DOSE RECEIVED ON 26/JAN/2018 (480 MG) AT 20:00
     Route: 048
     Dates: start: 20171130
  50. CLOROTRIMETON [Concomitant]
     Active Substance: CHLORPHENIRAMINE MALEATE
     Route: 065
     Dates: start: 20180404, end: 20180404
  51. DEXAMETHASONE. [Concomitant]
     Active Substance: DEXAMETHASONE
     Indication: PREMEDICATION
     Route: 065
     Dates: start: 20171011, end: 20171011
  52. DEXAMETHASONE. [Concomitant]
     Active Substance: DEXAMETHASONE
     Route: 065
     Dates: start: 20170927, end: 20170927
  53. DEXAMETHASONE. [Concomitant]
     Active Substance: DEXAMETHASONE
     Route: 065
     Dates: start: 20180404, end: 20180404
  54. RANITIDINE. [Concomitant]
     Active Substance: RANITIDINE
     Dosage: PREMEDICATION
     Route: 065
     Dates: start: 20170816, end: 20170816
  55. RANITIDINE. [Concomitant]
     Active Substance: RANITIDINE
     Dosage: PREMEDICATION
     Route: 065
     Dates: start: 20170802, end: 20170802
  56. RANITIDINE. [Concomitant]
     Active Substance: RANITIDINE
     Dosage: PREMEDICATION
     Route: 065
     Dates: start: 20170830, end: 20170830
  57. RANITIDINE. [Concomitant]
     Active Substance: RANITIDINE
     Dosage: PREMEDICATION
     Route: 065
     Dates: start: 20180207, end: 20180207
  58. RANITIDINE. [Concomitant]
     Active Substance: RANITIDINE
     Dosage: PREMEDICATION
     Route: 065
     Dates: start: 20180307, end: 20180307
  59. RANITIDINE. [Concomitant]
     Active Substance: RANITIDINE
     Route: 065
     Dates: start: 20180321, end: 20180321
  60. RANITIDINE. [Concomitant]
     Active Substance: RANITIDINE
     Route: 065
     Dates: start: 20180516, end: 20180516
  61. AUGMENTIN [Concomitant]
     Active Substance: AMOXICILLIN\CLAVULANATE POTASSIUM
     Indication: BACTERAEMIA
     Route: 065
     Dates: start: 20171027, end: 20171030
  62. CLOROTRIMETON [Concomitant]
     Active Substance: CHLORPHENIRAMINE MALEATE
     Route: 065
     Dates: start: 20170913, end: 20170913
  63. CLOROTRIMETON [Concomitant]
     Active Substance: CHLORPHENIRAMINE MALEATE
     Route: 065
     Dates: start: 20170830, end: 20170830
  64. CLOROTRIMETON [Concomitant]
     Active Substance: CHLORPHENIRAMINE MALEATE
     Route: 065
     Dates: start: 20180221, end: 20180221
  65. CLOROTRIMETON [Concomitant]
     Active Substance: CHLORPHENIRAMINE MALEATE
     Route: 065
     Dates: start: 20180516, end: 20180516
  66. DEXAMETHASONE. [Concomitant]
     Active Substance: DEXAMETHASONE
     Route: 065
     Dates: start: 20170816, end: 20170816
  67. DEXAMETHASONE. [Concomitant]
     Active Substance: DEXAMETHASONE
     Route: 065
     Dates: start: 20171227, end: 20171227
  68. DEXAMETHASONE. [Concomitant]
     Active Substance: DEXAMETHASONE
     Route: 065
     Dates: start: 20171109, end: 20171109
  69. DEXAMETHASONE. [Concomitant]
     Active Substance: DEXAMETHASONE
     Route: 065
     Dates: start: 20180321, end: 20180321
  70. IBUPROFEN. [Concomitant]
     Active Substance: IBUPROFEN
     Indication: OEDEMA PERIPHERAL
     Route: 065
     Dates: start: 20181114, end: 20181119

REACTIONS (1)
  - Muscular weakness [Recovering/Resolving]

NARRATIVE: CASE EVENT DATE: 20180127
